FAERS Safety Report 24680328 (Version 2)
Quarter: 2025Q1

REPORT INFORMATION
  Report Type: Report from Study
  Country: US (occurrence: US)
  Receive Date: 20241129
  Receipt Date: 20250110
  Transmission Date: 20250408
  Serious: Yes (Other)
  Sender: TAKEDA
  Company Number: US-TAKEDA-2024TUS118418

PATIENT
  Age: 68 Year
  Sex: Male
  Weight: 73 kg

DRUGS (1)
  1. FRUQUINTINIB [Suspect]
     Active Substance: FRUQUINTINIB
     Indication: Colon cancer

REACTIONS (16)
  - Burn oral cavity [Unknown]
  - Feeling abnormal [Unknown]
  - Abdominal pain upper [Unknown]
  - Blood pressure decreased [Unknown]
  - Flatulence [Unknown]
  - Insomnia [Unknown]
  - Taste disorder [Unknown]
  - Dry mouth [Unknown]
  - Chest pain [Unknown]
  - Headache [Unknown]
  - Back pain [Unknown]
  - Dysphonia [Unknown]
  - Blood pressure increased [Unknown]
  - Diarrhoea [Unknown]
  - Neck pain [Unknown]
  - Fatigue [Unknown]

NARRATIVE: CASE EVENT DATE: 20241101
